FAERS Safety Report 9408651 (Version 4)
Quarter: 2014Q1

REPORT INFORMATION
  Report Type: Spontaneous
  Country: US (occurrence: US)
  Receive Date: 20130718
  Receipt Date: 20140102
  Transmission Date: 20141002
  Serious: Yes (Hospitalization)
  Sender: FDA-Public Use
  Company Number: US-009507513-1307USA008268

PATIENT
  Age: 66 Year
  Sex: Male

DRUGS (5)
  1. ZETIA [Suspect]
     Indication: BLOOD CHOLESTEROL
     Dosage: 10 MG, QPM
     Route: 048
     Dates: start: 2002, end: 20130705
  2. ZETIA [Suspect]
     Indication: BLOOD CHOLESTEROL INCREASED
     Dosage: 10 MG, QD
     Route: 048
     Dates: start: 2013, end: 2013
  3. LIPITOR [Suspect]
     Dosage: 1 DF, QAM
  4. PLAVIX [Concomitant]
  5. ASPIRIN [Concomitant]

REACTIONS (6)
  - Atrial fibrillation [Unknown]
  - Intestinal haemorrhage [Unknown]
  - Blood cholesterol decreased [Unknown]
  - Back pain [Recovered/Resolved]
  - Abdominal discomfort [Recovered/Resolved]
  - Product quality issue [Unknown]
